FAERS Safety Report 24934878 (Version 2)
Quarter: 2025Q1

REPORT INFORMATION
  Report Type: Spontaneous
  Country: NL (occurrence: NL)
  Receive Date: 20250206
  Receipt Date: 20250211
  Transmission Date: 20250409
  Serious: No
  Sender: ASTELLAS
  Company Number: NL-ASTELLAS-2025-AER-007162

PATIENT
  Sex: Female

DRUGS (1)
  1. VEOZAH [Suspect]
     Active Substance: FEZOLINETANT
     Indication: Hot flush
     Route: 065
     Dates: start: 202403

REACTIONS (1)
  - Hepatic pain [Recovered/Resolved]
